FAERS Safety Report 17811590 (Version 1)
Quarter: 2020Q2

REPORT INFORMATION
  Report Type: Spontaneous
  Country: FR (occurrence: FR)
  Receive Date: 20200521
  Receipt Date: 20200521
  Transmission Date: 20200714
  Serious: Yes (Other)
  Sender: FDA-Public Use
  Company Number: FR-JNJFOC-20200519190

PATIENT
  Sex: Male
  Weight: 70 kg

DRUGS (13)
  1. FLECAINE [Concomitant]
     Active Substance: FLECAINIDE
     Dosage: 0.5 DF, TID
  2. IVABRADINE [Concomitant]
     Active Substance: IVABRADINE
     Dosage: 5 MG
  3. ROSUVASTATIN. [Concomitant]
     Active Substance: ROSUVASTATIN
     Dosage: 5 MG
  4. CLOPIDOGREL [Concomitant]
     Active Substance: CLOPIDOGREL BISULFATE
     Dosage: 75 MG, QD
  5. RIVAROXABAN [Suspect]
     Active Substance: RIVAROXABAN
     Dosage: 20 MG, QD
     Route: 048
     Dates: start: 201910
  6. PREDNISOLONE. [Concomitant]
     Active Substance: PREDNISOLONE
     Dosage: 0.5 DF, QD
  7. ZIMADOCE [Concomitant]
     Dosage: UNK
  8. SMECTA [ALUMINIUM HYDROXIDE-MAGNESIUM CARBONATE GEL;ALUMINIUM MAGN [Concomitant]
     Indication: PAIN
     Dosage: UNK
  9. DOLIPRANE [Concomitant]
     Active Substance: ACETAMINOPHEN
     Dosage: UNK, PRN
  10. RIVAROXABAN [Suspect]
     Active Substance: RIVAROXABAN
     Indication: PULMONARY EMBOLISM
     Dosage: 40 MG
     Route: 048
     Dates: start: 201909
  11. OLODATEROL HYDROCHLORIDE [Concomitant]
     Active Substance: OLODATEROL HYDROCHLORIDE
     Dosage: 2 X 2.5 MCG, QD
     Route: 055
  12. SPIRONOLACTONE. [Concomitant]
     Active Substance: SPIRONOLACTONE
     Dosage: 75 MG, QD
  13. TELMISARTAN. [Concomitant]
     Active Substance: TELMISARTAN
     Dosage: 80 MG

REACTIONS (6)
  - Weight decreased [Not Recovered/Not Resolved]
  - Asthenia [Not Recovered/Not Resolved]
  - Pain [Unknown]
  - Fatigue [Not Recovered/Not Resolved]
  - Dyspepsia [Not Recovered/Not Resolved]
  - Appetite disorder [Recovering/Resolving]

NARRATIVE: CASE EVENT DATE: 2019
